FAERS Safety Report 18032449 (Version 2)
Quarter: 2020Q3

REPORT INFORMATION
  Report Type: Report from Study
  Country: GB (occurrence: GB)
  Receive Date: 20200716
  Receipt Date: 20200717
  Transmission Date: 20201103
  Serious: Yes (Other)
  Sender: FDA-Public Use
  Company Number: GB-PFIZER INC-2020269267

PATIENT
  Age: 19 Year
  Sex: Female

DRUGS (3)
  1. DENZAPINE [Suspect]
     Active Substance: CLOZAPINE
     Indication: BORDERLINE PERSONALITY DISORDER
     Dosage: UNK
     Route: 048
     Dates: end: 20200621
  2. LITHIUM. [Suspect]
     Active Substance: LITHIUM
     Indication: BORDERLINE PERSONALITY DISORDER
     Dosage: UNK
  3. VENLAFAXINE HCL [Suspect]
     Active Substance: VENLAFAXINE HYDROCHLORIDE
     Indication: BORDERLINE PERSONALITY DISORDER
     Route: 048

REACTIONS (8)
  - Hypertension [Unknown]
  - Central obesity [Unknown]
  - Exercise lack of [Unknown]
  - Drug ineffective for unapproved indication [Unknown]
  - Serotonin syndrome [Unknown]
  - Weight increased [Unknown]
  - Electrocardiogram QT prolonged [Unknown]
  - Off label use [Unknown]
